FAERS Safety Report 9287292 (Version 2)
Quarter: 2013Q2

REPORT INFORMATION
  Report Type: Report from Study
  Country: CA (occurrence: CA)
  Receive Date: 20130513
  Receipt Date: 20130523
  Transmission Date: 20140414
  Serious: Yes (Other)
  Sender: FDA-Public Use
  Company Number: CA-ABBOTT-13P-028-1079158-00

PATIENT
  Sex: Female
  Weight: 88.53 kg

DRUGS (3)
  1. HUMIRA [Suspect]
     Indication: PSORIATIC ARTHROPATHY
     Route: 058
     Dates: start: 20080319, end: 20130401
  2. ARTHROTEC [Concomitant]
     Indication: PSORIATIC ARTHROPATHY
     Route: 048
  3. METHOTREXATE [Concomitant]
     Indication: PSORIATIC ARTHROPATHY
     Route: 058

REACTIONS (5)
  - Cartilage atrophy [Unknown]
  - Arthropathy [Unknown]
  - Arthralgia [Not Recovered/Not Resolved]
  - Joint swelling [Recovered/Resolved]
  - Arthralgia [Not Recovered/Not Resolved]
